FAERS Safety Report 20071220 (Version 3)
Quarter: 2021Q4

REPORT INFORMATION
  Report Type: Report from Study
  Country: CO (occurrence: CO)
  Receive Date: 20211115
  Receipt Date: 20211207
  Transmission Date: 20220303
  Serious: Yes (Death, Hospitalization)
  Sender: FDA-Public Use
  Company Number: CO-JNJFOC-20211050952

PATIENT
  Age: 60 Year
  Sex: Female
  Weight: 77 kg

DRUGS (6)
  1. IMBRUVICA [Suspect]
     Active Substance: IBRUTINIB
     Indication: Mantle cell lymphoma
     Dosage: LAST APPLICATION ON 20 SEP 2021.
     Route: 048
     Dates: start: 20200416, end: 20210920
  2. BUSCAPINA [Concomitant]
     Indication: Product used for unknown indication
     Route: 065
  3. POTASSIUM [Concomitant]
     Active Substance: POTASSIUM
     Indication: Product used for unknown indication
     Route: 065
  4. LOSARTAN [Concomitant]
     Active Substance: LOSARTAN
     Indication: Hypertension
     Route: 065
  5. ASPIRIN [Concomitant]
     Active Substance: ASPIRIN
     Indication: Product used for unknown indication
  6. FUROSEMIDE [Concomitant]
     Active Substance: FUROSEMIDE
     Indication: Product used for unknown indication

REACTIONS (10)
  - Splenomegaly [Fatal]
  - Hepatomegaly [Recovering/Resolving]
  - Abdominal distension [Unknown]
  - Catheter site injury [Recovering/Resolving]
  - Inflammation [Recovering/Resolving]
  - Oxygen saturation decreased [Recovering/Resolving]
  - Gastritis [Recovering/Resolving]
  - Platelet count decreased [Recovering/Resolving]
  - Vomiting [Unknown]
  - Decreased appetite [Unknown]

NARRATIVE: CASE EVENT DATE: 20211013
